FAERS Safety Report 5355760-2 (Version None)
Quarter: 2007Q2

REPORT INFORMATION
  Report Type: 
  Country: None (occurrence: None)
  Receive Date: 20070611
  Receipt Date: 20070611
  Transmission Date: 20071010
  Serious: Yes (Hospitalization)
  Sender: FDA-Public Use
  Company Number: None

PATIENT
  Age: 39 Year
  Sex: Female
  Weight: 129.2752 kg

DRUGS (1)
  1. ACTOS [Suspect]
     Indication: HYPERGLYCAEMIA
     Dosage: 30MG DAILY PO
     Route: 048
     Dates: start: 20061107, end: 20061112

REACTIONS (2)
  - CARDIAC FAILURE CONGESTIVE [None]
  - FLUID OVERLOAD [None]
